FAERS Safety Report 17032642 (Version 1)
Quarter: 2019Q4

REPORT INFORMATION
  Report Type: Spontaneous
  Country: US (occurrence: US)
  Receive Date: 20191114
  Receipt Date: 20191114
  Transmission Date: 20200122
  Serious: Yes (Other)
  Sender: FDA-Public Use
  Company Number: US-REGENERON PHARMACEUTICALS, INC.-2019-64025

PATIENT

DRUGS (1)
  1. EYLEA [Suspect]
     Active Substance: AFLIBERCEPT
     Indication: NEOVASCULAR AGE-RELATED MACULAR DEGENERATION
     Dosage: UNK
     Dates: start: 2017

REACTIONS (6)
  - Thyroid disorder [Unknown]
  - Prostatomegaly [Unknown]
  - Osteonecrosis [Unknown]
  - Cardiac disorder [Unknown]
  - Osteoporosis [Unknown]
  - Hypertension [Unknown]
